FAERS Safety Report 10965704 (Version 1)
Quarter: 2015Q1

REPORT INFORMATION
  Report Type: Spontaneous
  Country: FR (occurrence: FR)
  Receive Date: 20150330
  Receipt Date: 20150330
  Transmission Date: 20150721
  Serious: Yes (Other)
  Sender: FDA-Public Use
  Company Number: FR-009507513-1503FRA006297

PATIENT
  Sex: Male
  Weight: 70 kg

DRUGS (3)
  1. GAVISCON (CALCIUM CARBONATE (+) SODIUM ALGINATE (+) SODIUM BICARBONATE [Concomitant]
     Indication: GASTRITIS
     Dosage: 1 SACHET, BID (2 SACHETS DAILY)
     Dates: start: 2013
  2. INEXIUM (ESOMEPRAZOLE MAGNESIUM) [Concomitant]
     Active Substance: ESOMEPRAZOLE MAGNESIUM
     Indication: GASTRITIS
     Dosage: 40 MG, QD
     Dates: start: 2013
  3. JANUVIA [Suspect]
     Active Substance: SITAGLIPTIN PHOSPHATE
     Indication: TYPE 2 DIABETES MELLITUS
     Dosage: 100 MG, QD
     Route: 048
     Dates: start: 20141118, end: 20150227

REACTIONS (2)
  - Gastrooesophageal reflux disease [Recovered/Resolved]
  - Oesophageal pain [Recovered/Resolved]
